FAERS Safety Report 12517536 (Version 1)
Quarter: 2016Q2

REPORT INFORMATION
  Report Type: Spontaneous
  Country: US (occurrence: US)
  Receive Date: 20160630
  Receipt Date: 20160630
  Transmission Date: 20160815
  Serious: Yes (Hospitalization)
  Sender: FDA-Public Use
  Company Number: US-PERRIGO-16US017435

PATIENT
  Age: 67 Year
  Sex: Male
  Weight: 81.63 kg

DRUGS (4)
  1. TESTOSTERONE CYPIONATE. [Suspect]
     Active Substance: TESTOSTERONE CYPIONATE
     Indication: BLOOD TESTOSTERONE DECREASED
     Dosage: 1/4 ML, WEEKLY
     Route: 030
     Dates: start: 2015
  2. TESTOSTERONE CYPIONATE. [Suspect]
     Active Substance: TESTOSTERONE CYPIONATE
     Dosage: 1/2 ML, WEEKLY
     Route: 030
  3. TESTOSTERONE CYPIONATE. [Suspect]
     Active Substance: TESTOSTERONE CYPIONATE
     Indication: BLOOD TESTOSTERONE DECREASED
     Dosage: 1/4 ML, WEEKLY
     Route: 030
     Dates: start: 2015
  4. TESTOSTERONE CYPIONATE. [Suspect]
     Active Substance: TESTOSTERONE CYPIONATE
     Dosage: 1/2 ML, WEEKLY
     Route: 030
     Dates: end: 20160525

REACTIONS (5)
  - Dyspnoea [Recovering/Resolving]
  - Pulmonary embolism [Unknown]
  - Peripheral embolism [Unknown]
  - Oestradiol increased [Unknown]
  - Drug administered at inappropriate site [Unknown]

NARRATIVE: CASE EVENT DATE: 2015
